FAERS Safety Report 10342161 (Version 1)
Quarter: 2014Q3

REPORT INFORMATION
  Report Type: Spontaneous
  Country: US (occurrence: None)
  Receive Date: 20140723
  Receipt Date: 20140723
  Transmission Date: 20150326
  Serious: Yes (Hospitalization)
  Sender: FDA-Public Use
  Company Number: 2014HINLIT0642

PATIENT
  Age: 50 Year
  Sex: Female

DRUGS (3)
  1. NITOGLYCERIN [Concomitant]
  2. LITHIUM [Suspect]
     Active Substance: LITHIUM CARBONATE
     Indication: BIPOLAR DISORDER
  3. THIAMAZOLE [METHIMAZOLE](THIAMZOLE [METHIMAZOLE]) [Concomitant]

REACTIONS (2)
  - Arteriospasm coronary [None]
  - Hyperthyroidism [None]
